FAERS Safety Report 7940969-1 (Version None)
Quarter: 2011Q4

REPORT INFORMATION
  Report Type: 
  Country: None (occurrence: None)
  Receive Date: 20111128
  Receipt Date: 20111118
  Transmission Date: 20120403
  Serious: Yes (Other)
  Sender: FDA-Public Use
  Company Number: PHHY2011BR102288

PATIENT
  Age: 55 Year
  Sex: Female

DRUGS (3)
  1. METFORMIN HCL [Suspect]
     Indication: DIABETES MELLITUS
     Dosage: 850 MG, BID
     Route: 048
  2. GLYBURIDE [Concomitant]
     Dosage: 5 MG, UNK
  3. METFORMIN HCL [Concomitant]

REACTIONS (5)
  - BLINDNESS [None]
  - OPTIC ATROPHY [None]
  - SYNCOPE [None]
  - DIARRHOEA [None]
  - ASTHENIA [None]
